FAERS Safety Report 10262817 (Version 5)
Quarter: 2015Q2

REPORT INFORMATION
  Report Type: Spontaneous
  Country: US (occurrence: US)
  Receive Date: 20140626
  Receipt Date: 20150602
  Transmission Date: 20150821
  Serious: Yes (Congenital Anomaly, Other)
  Sender: FDA-Public Use
  Company Number: US-ELI_LILLY_AND_COMPANY-US201406008160

PATIENT
  Sex: Female

DRUGS (14)
  1. MAGNESIUM [Concomitant]
     Active Substance: MAGNESIUM
     Route: 064
  2. BETAMETHASON                       /00008501/ [Concomitant]
     Route: 064
  3. PROZAC [Suspect]
     Active Substance: FLUOXETINE HYDROCHLORIDE
     Indication: DEPRESSION
     Dosage: 20 MG, QD
     Route: 064
     Dates: start: 1998
  4. PROZAC [Suspect]
     Active Substance: FLUOXETINE HYDROCHLORIDE
     Dosage: 10 MG, QD
     Route: 064
  5. AMPICILLIN [Concomitant]
     Active Substance: AMPICILLIN
     Route: 064
  6. MAGNESIUM [Concomitant]
     Active Substance: MAGNESIUM
     Route: 064
  7. NIFEDIPINE. [Concomitant]
     Active Substance: NIFEDIPINE
     Route: 064
  8. PROZAC [Suspect]
     Active Substance: FLUOXETINE HYDROCHLORIDE
     Indication: DEPRESSION
     Dosage: 20 MG, QD
     Route: 064
     Dates: start: 1998
  9. PROZAC [Suspect]
     Active Substance: FLUOXETINE HYDROCHLORIDE
     Dosage: 10 MG, QD
     Route: 064
  10. PRENAT                             /00023601/ [Concomitant]
     Route: 064
  11. PRENAT                             /00023601/ [Concomitant]
     Route: 064
  12. NIFEDIPINE. [Concomitant]
     Active Substance: NIFEDIPINE
     Route: 064
  13. AMPICILLIN [Concomitant]
     Active Substance: AMPICILLIN
     Route: 064
  14. BETAMETHASON                       /00008501/ [Concomitant]
     Route: 064

REACTIONS (5)
  - Cleft palate [Unknown]
  - Premature baby [Unknown]
  - Foetal exposure during pregnancy [Recovered/Resolved]
  - Cleft lip [Unknown]
  - Low birth weight baby [Unknown]
